FAERS Safety Report 9236993 (Version 1)
Quarter: 2013Q2

REPORT INFORMATION
  Report Type: Spontaneous
  Country: CZ (occurrence: CZ)
  Receive Date: 20130417
  Receipt Date: 20130417
  Transmission Date: 20140414
  Serious: Yes (Hospitalization)
  Sender: FDA-Public Use
  Company Number: CZ-ACTELION-A-CH2013-81842

PATIENT
  Age: 3 Year
  Sex: Female
  Weight: 15.5 kg

DRUGS (3)
  1. ZAVESCA [Suspect]
     Indication: NIEMANN-PICK DISEASE
     Dosage: 100 MG, BID
     Route: 048
     Dates: start: 20110912
  2. ZODAC [Concomitant]
     Dosage: UNK
     Dates: start: 200809
  3. ECOBEC [Concomitant]
     Dosage: UNK
     Dates: start: 200809

REACTIONS (3)
  - Dental caries [Recovered/Resolved with Sequelae]
  - Dental operation [Recovered/Resolved with Sequelae]
  - Dysphagia [Not Recovered/Not Resolved]
